FAERS Safety Report 5196275-4 (Version None)
Quarter: 2006Q4

REPORT INFORMATION
  Report Type: 
  Country: None (occurrence: None)
  Receive Date: 20061222
  Receipt Date: 20061208
  Transmission Date: 20070319
  Serious: Yes (Other)
  Sender: FDA-Public Use
  Company Number: 2006152771

PATIENT
  Sex: Female

DRUGS (2)
  1. DALACIN C (CLINDAMYCIN HYDROCHLORIDE) [Suspect]
     Indication: PELVIC INFLAMMATORY DISEASE
     Dosage: 600 MG (300 MG, 2 IN 1 D), ORAL
     Route: 048
  2. DRUG, UNSPECIFIED [Concomitant]

REACTIONS (3)
  - ABORTION SPONTANEOUS [None]
  - CHROMOSOME ABNORMALITY [None]
  - DRUG EXPOSURE DURING PREGNANCY [None]
